FAERS Safety Report 25088219 (Version 1)
Quarter: 2025Q1

REPORT INFORMATION
  Report Type: Spontaneous
  Country: US (occurrence: US)
  Receive Date: 20250318
  Receipt Date: 20250318
  Transmission Date: 20250409
  Serious: No
  Sender: BRISTOL-MYERS SQUIBB COMPANY
  Company Number: US-BRISTOL-MYERS SQUIBB COMPANY-2025-039445

PATIENT
  Age: 64 Year
  Sex: Female

DRUGS (1)
  1. ORENCIA [Suspect]
     Active Substance: ABATACEPT
     Indication: Drug therapy
     Dosage: DOSE: 125 MG/ML
     Route: 058
     Dates: start: 202204

REACTIONS (4)
  - Dry skin [Unknown]
  - Hair texture abnormal [Unknown]
  - Nail disorder [Unknown]
  - Fatigue [Unknown]
